FAERS Safety Report 10574464 (Version 2)
Quarter: 2014Q4

REPORT INFORMATION
  Report Type: Spontaneous
  Country: BR (occurrence: BR)
  Receive Date: 20141110
  Receipt Date: 20141124
  Transmission Date: 20150529
  Serious: Yes (Other)
  Sender: FDA-Public Use
  Company Number: BR-GLAXOSMITHKLINE-BR2014GSK018493

PATIENT
  Sex: Female
  Weight: 45 kg

DRUGS (3)
  1. MEDICATION UNKNOWN [Concomitant]
     Active Substance: UNSPECIFIED INGREDIENT
     Indication: NEUROLOGICAL SYMPTOM
  2. ZINNAT [Suspect]
     Active Substance: CEFUROXIME AXETIL
     Indication: URINARY TRACT INFECTION
     Dosage: 1 UNK, QID
     Route: 048
     Dates: start: 20141031, end: 20141103
  3. ORAL ANTIDIABETIC MEDICATION NOS [Concomitant]
     Indication: DIABETES MELLITUS

REACTIONS (4)
  - Somnolence [Not Recovered/Not Resolved]
  - Hypotension [Not Recovered/Not Resolved]
  - Fatigue [Not Recovered/Not Resolved]
  - Urinary retention [Not Recovered/Not Resolved]
